FAERS Safety Report 7824817-6 (Version None)
Quarter: 2011Q4

REPORT INFORMATION
  Report Type: 
  Country: None (occurrence: None)
  Receive Date: 20111019
  Receipt Date: 20110921
  Transmission Date: 20120403
  Serious: No
  Sender: FDA-Public Use
  Company Number: US-BRISTOL-MYERS SQUIBB COMPANY-15527369

PATIENT
  Age: 62 Year
  Sex: Male

DRUGS (2)
  1. AVALIDE [Suspect]
     Dosage: RECEIVED FOR MANY YEARS
  2. IBUPROFEN [Concomitant]

REACTIONS (5)
  - DRUG INEFFECTIVE [None]
  - JOINT SWELLING [None]
  - FATIGUE [None]
  - SOMNOLENCE [None]
  - MYALGIA [None]
